FAERS Safety Report 9368008 (Version 1)
Quarter: 2013Q2

REPORT INFORMATION
  Report Type: Spontaneous
  Country: US (occurrence: US)
  Receive Date: 20130625
  Receipt Date: 20130625
  Transmission Date: 20140414
  Serious: No
  Sender: FDA-Public Use
  Company Number: US-ASTELLAS-2013US002900

PATIENT
  Sex: Female

DRUGS (2)
  1. VESICARE [Suspect]
     Indication: URINARY INCONTINENCE
     Dosage: UNK
     Route: 065
     Dates: end: 20130325
  2. VESICARE [Suspect]
     Dosage: UNK
     Route: 048
     Dates: start: 20130327

REACTIONS (3)
  - Tinnitus [Not Recovered/Not Resolved]
  - Bladder disorder [Unknown]
  - Vision blurred [Recovering/Resolving]
